FAERS Safety Report 5268851-1 (Version None)
Quarter: 2007Q1

REPORT INFORMATION
  Report Type: 
  Country: None (occurrence: None)
  Receive Date: 20061212
  Receipt Date: 20040722
  Transmission Date: 20070707
  Serious: Yes (Other)
  Sender: FDA-Public Use
  Company Number: 2004UW15483

PATIENT
  Sex: Male

DRUGS (1)
  1. CASODEX [Suspect]

REACTIONS (2)
  - FEELING ABNORMAL [None]
  - MEDICATION ERROR [None]
